FAERS Safety Report 14499392 (Version 3)
Quarter: 2018Q2

REPORT INFORMATION
  Report Type: Not Available
  Country: US (occurrence: US)
  Receive Date: 20180207
  Receipt Date: 20180424
  Transmission Date: 20180711
  Serious: Yes (Hospitalization)
  Sender: FDA-Public Use
  Company Number: US-NEUROCRINE BIOSCIENCES INC.-2018NBI00291

PATIENT
  Sex: Female

DRUGS (7)
  1. LEXAPRO [Concomitant]
     Active Substance: ESCITALOPRAM OXALATE
     Indication: MENTAL DISORDER
  2. BUSPAR [Concomitant]
     Active Substance: BUSPIRONE HYDROCHLORIDE
     Dosage: AT BEDTIME
  3. GABAPENTIN. [Concomitant]
     Active Substance: GABAPENTIN
     Indication: MENTAL DISORDER
  4. BUSPAR [Concomitant]
     Active Substance: BUSPIRONE HYDROCHLORIDE
     Indication: MENTAL DISORDER
  5. ABILIFY [Concomitant]
     Active Substance: ARIPIPRAZOLE
     Indication: MENTAL DISORDER
     Dosage: EVERY MORNING
  6. WELLBUTRIN XL [Concomitant]
     Active Substance: BUPROPION HYDROCHLORIDE
     Indication: MENTAL DISORDER
  7. INGREZZA [Suspect]
     Active Substance: VALBENAZINE
     Indication: TARDIVE DYSKINESIA

REACTIONS (2)
  - Wound [Recovered/Resolved]
  - Systemic infection [Recovered/Resolved]
